FAERS Safety Report 23009650 (Version 3)
Quarter: 2023Q4

REPORT INFORMATION
  Report Type: Spontaneous
  Country: US (occurrence: US)
  Receive Date: 20230929
  Receipt Date: 20231114
  Transmission Date: 20240110
  Serious: Yes (Other)
  Sender: FDA-Public Use
  Company Number: US-RADIUS HEALTH, INC.-2023US004505

PATIENT
  Age: 55 Year
  Sex: Female

DRUGS (1)
  1. TYMLOS [Suspect]
     Active Substance: ABALOPARATIDE
     Indication: Product used for unknown indication
     Dosage: 80 MCG, DAILY
     Route: 058
     Dates: start: 202308

REACTIONS (9)
  - Cardiac flutter [Unknown]
  - Initial insomnia [Unknown]
  - Injection site irritation [Unknown]
  - Injection site pain [Unknown]
  - Headache [Recovered/Resolved]
  - Heart rate increased [Unknown]
  - Injection site bruising [Unknown]
  - Injection site erythema [Unknown]
  - Nausea [Unknown]

NARRATIVE: CASE EVENT DATE: 20230831
